FAERS Safety Report 5960890-8 (Version None)
Quarter: 2008Q4

REPORT INFORMATION
  Report Type: 
  Country: None (occurrence: None)
  Receive Date: 20081118
  Receipt Date: 20081107
  Transmission Date: 20090506
  Serious: Yes (Other)
  Sender: FDA-Public Use
  Company Number: GXKR2008IT10671

PATIENT
  Age: 51 Year
  Sex: Male

DRUGS (16)
  1. EPIRUBICIN [Suspect]
     Indication: DIFFUSE LARGE B-CELL LYMPHOMA
     Dosage: WEEKS 1, 3, 5, 7, 9, 11, UNKNOWN
  2. EPIRUBICIN [Suspect]
     Indication: EPSTEIN-BARR VIRUS ASSOCIATED LYMPHOPROLIFERATIVE DISORDER
     Dosage: WEEKS 1, 3, 5, 7, 9, 11, UNKNOWN
  3. ETOPOSIDE [Suspect]
     Indication: DIFFUSE LARGE B-CELL LYMPHOMA
     Dosage: 50 MG/M2, DAY 1, WEEKS 3,7,11, INTRAVENOUS, 100 MG/M2, DAYS 2, 3, WEEKS 3, 7, 11, ORAL
     Route: 042
  4. ETOPOSIDE [Suspect]
     Indication: EPSTEIN-BARR VIRUS ASSOCIATED LYMPHOPROLIFERATIVE DISORDER
     Dosage: 50 MG/M2, DAY 1, WEEKS 3,7,11, INTRAVENOUS, 100 MG/M2, DAYS 2, 3, WEEKS 3, 7, 11, ORAL
     Route: 042
  5. VINCRISTINE [Suspect]
     Indication: DIFFUSE LARGE B-CELL LYMPHOMA
     Dosage: 1.4 MG/M2, UNK, UNKNOWN
  6. BLEOMYCIN (NGX) (BLEOMYCIN SULFATE) UNKNOWN [Suspect]
     Indication: DIFFUSE LARGE B-CELL LYMPHOMA
     Dosage: 10 IU/M2, WEEKS 2, 4, 6, 8, 10, 12, UNKNOWN
  7. BLEOMYCIN (NGX) (BLEOMYCIN SULFATE) UNKNOWN [Suspect]
     Indication: EPSTEIN-BARR VIRUS ASSOCIATED LYMPHOPROLIFERATIVE DISORDER
     Dosage: 10 IU/M2, WEEKS 2, 4, 6, 8, 10, 12, UNKNOWN
  8. PREDNISONE [Suspect]
     Indication: DIFFUSE LARGE B-CELL LYMPHOMA
     Dosage: 40 MG/M2, EVERY OTHER DAY, WEEKS 1 THROUGH 10, TAPERED DURING WEEKS 10 AND 12, ORAL
     Route: 048
  9. PREDNISONE [Suspect]
     Indication: EPSTEIN-BARR VIRUS ASSOCIATED LYMPHOPROLIFERATIVE DISORDER
     Dosage: 40 MG/M2, EVERY OTHER DAY, WEEKS 1 THROUGH 10, TAPERED DURING WEEKS 10 AND 12, ORAL
     Route: 048
  10. CYCLOPHOSPHAMIDE [Suspect]
     Indication: DIFFUSE LARGE B-CELL LYMPHOMA
     Dosage: 350 MG/M2, WEEKS 1, 5, 9, UNKNOWN
  11. CYCLOPHOSPHAMIDE [Suspect]
     Indication: EPSTEIN-BARR VIRUS ASSOCIATED LYMPHOPROLIFERATIVE DISORDER
     Dosage: 350 MG/M2, WEEKS 1, 5, 9, UNKNOWN
  12. CO-TRIMOXAZOLE (CO-TRIMOXAZOLE) [Concomitant]
  13. FLUCONAZOLE [Concomitant]
  14. RANITIDINE [Concomitant]
  15. ACYCLOVIR [Concomitant]
  16. VALACYCLOVIR [Concomitant]

REACTIONS (1)
  - ANAEMIA [None]
